FAERS Safety Report 9020982 (Version 1)
Quarter: 2013Q1

REPORT INFORMATION
  Report Type: Spontaneous
  Country: US (occurrence: US)
  Receive Date: 20130119
  Receipt Date: 20130119
  Transmission Date: 20140127
  Serious: No
  Sender: FDA-Public Use
  Company Number: US-ALLERGAN-1204164US

PATIENT
  Age: 55 None
  Sex: Female
  Weight: 65.76 kg

DRUGS (5)
  1. BOTOX COSMETIC [Suspect]
     Indication: SKIN WRINKLING
     Dosage: UNK
     Route: 030
     Dates: start: 20120315, end: 20120315
  2. JUVEDERM [Suspect]
     Indication: PRODUCT USED FOR UNKNOWN INDICATION
     Dosage: UNK
     Dates: start: 20120315, end: 20120315
  3. FLOVENT [Concomitant]
     Indication: ASTHMA
     Dosage: UNK
  4. ALBUTEROL [Concomitant]
     Indication: ASTHMA
     Dosage: UNK
  5. SYNTHROID [Concomitant]
     Indication: HYPOTHYROIDISM
     Dosage: UNK

REACTIONS (16)
  - Headache [Not Recovered/Not Resolved]
  - Eye swelling [Not Recovered/Not Resolved]
  - Back pain [Not Recovered/Not Resolved]
  - Speech disorder [Not Recovered/Not Resolved]
  - Mastication disorder [Not Recovered/Not Resolved]
  - Facial paresis [Not Recovered/Not Resolved]
  - Neck pain [Not Recovered/Not Resolved]
  - Blepharochalasis [Not Recovered/Not Resolved]
  - Asthenia [Unknown]
  - Dysphagia [Unknown]
  - Diarrhoea [Unknown]
  - Influenza [Unknown]
  - Dehydration [Unknown]
  - Weight decreased [Unknown]
  - Injection site bruising [Unknown]
  - Eyelid ptosis [Unknown]
